FAERS Safety Report 8246373-3 (Version None)
Quarter: 2012Q1

REPORT INFORMATION
  Report Type: 
  Country: None (occurrence: None)
  Receive Date: 20120329
  Receipt Date: 20120329
  Transmission Date: 20120608
  Serious: Yes (Death, Hospitalization)
  Sender: FDA-Public Use
  Company Number: None

PATIENT
  Sex: Female
  Weight: 45 kg

DRUGS (7)
  1. CYCLOPHOSPHAMIDE [Suspect]
     Dosage: 270 MG
     Dates: end: 20120105
  2. DOXORUBICIN HCL [Suspect]
     Dosage: 50 MG
  3. ETOPOSIDE [Suspect]
     Dosage: 135 MG
     Dates: end: 20120120
  4. TEMOZOLOMIDE [Suspect]
     Dosage: 150 MG
     Dates: end: 20120210
  5. IFOSFAMIDE [Suspect]
     Dosage: 2410 MG
     Dates: end: 20120120
  6. IRINOTECAN HCL [Suspect]
     Dosage: 70 MG
     Dates: end: 20120209
  7. VINCRISTINE SULFATE [Suspect]
     Dosage: 2 MG
     Dates: end: 20120222

REACTIONS (11)
  - ASCITES [None]
  - RESPIRATORY FAILURE [None]
  - CLOSTRIDIUM DIFFICILE COLITIS [None]
  - CAECITIS [None]
  - PORTAL VEIN THROMBOSIS [None]
  - HYPOVOLAEMIC SHOCK [None]
  - VENOOCCLUSIVE LIVER DISEASE [None]
  - DISTRIBUTIVE SHOCK [None]
  - ACUTE RESPIRATORY DISTRESS SYNDROME [None]
  - COAGULOPATHY [None]
  - GASTROINTESTINAL HAEMORRHAGE [None]
